FAERS Safety Report 9915620 (Version 2)
Quarter: 2015Q4

REPORT INFORMATION
  Report Type: Report from Study
  Country: US (occurrence: US)
  Receive Date: 20140221
  Receipt Date: 20151110
  Transmission Date: 20160305
  Serious: Yes (Other)
  Sender: FDA-Public Use
  Company Number: US-ROCHE-1335493

PATIENT
  Age: 59 Year
  Sex: Female

DRUGS (16)
  1. LUCENTIS [Suspect]
     Active Substance: RANIBIZUMAB
     Indication: DIABETIC RETINOPATHY
     Route: 050
     Dates: start: 20110706
  2. LUCENTIS [Suspect]
     Active Substance: RANIBIZUMAB
     Route: 050
     Dates: start: 20110907
  3. LUCENTIS [Suspect]
     Active Substance: RANIBIZUMAB
     Route: 050
     Dates: start: 20111102
  4. LUCENTIS [Suspect]
     Active Substance: RANIBIZUMAB
     Route: 050
     Dates: start: 20120111
  5. LUCENTIS [Suspect]
     Active Substance: RANIBIZUMAB
     Route: 050
     Dates: start: 20111130
  6. TETRACAINE. [Concomitant]
     Active Substance: TETRACAINE
  7. AVASTIN [Suspect]
     Active Substance: BEVACIZUMAB
     Indication: PRODUCT USED FOR UNKNOWN INDICATION
     Route: 050
  8. ZYMAR [Concomitant]
     Active Substance: GATIFLOXACIN
  9. LUCENTIS [Suspect]
     Active Substance: RANIBIZUMAB
     Route: 050
     Dates: start: 20111005
  10. LUCENTIS [Suspect]
     Active Substance: RANIBIZUMAB
     Route: 050
  11. LUCENTIS [Suspect]
     Active Substance: RANIBIZUMAB
     Indication: DIABETIC RETINAL OEDEMA
     Route: 050
     Dates: start: 20110803
  12. LUCENTIS [Suspect]
     Active Substance: RANIBIZUMAB
     Route: 050
     Dates: start: 20120222
  13. AKTEN [Concomitant]
     Active Substance: LIDOCAINE HYDROCHLORIDE
  14. LUCENTIS [Suspect]
     Active Substance: RANIBIZUMAB
     Route: 050
     Dates: start: 20111214
  15. LUCENTIS [Suspect]
     Active Substance: RANIBIZUMAB
     Route: 050
  16. BETADINE [Concomitant]
     Active Substance: POVIDONE-IODINE

REACTIONS (5)
  - Ocular hyperaemia [Unknown]
  - Cataract nuclear [Unknown]
  - Visual acuity reduced [Unknown]
  - Glaucoma [Unknown]
  - Lacrimation increased [Unknown]

NARRATIVE: CASE EVENT DATE: 20120313
